FAERS Safety Report 8543679-5 (Version None)
Quarter: 2012Q3

REPORT INFORMATION
  Report Type: 
  Country: None (occurrence: None)
  Receive Date: 20120719
  Receipt Date: 20120719
  Transmission Date: 20120928
  Serious: Yes (Hospitalization)
  Sender: FDA-Public Use
  Company Number: None

PATIENT
  Sex: Female
  Weight: 56.6 kg

DRUGS (1)
  1. LO/OVRAL [Suspect]
     Indication: MENSTRUATION IRREGULAR
     Dosage: DAILY PO, 4-5 MONTHS
     Route: 048

REACTIONS (6)
  - GAIT DISTURBANCE [None]
  - WEIGHT BEARING DIFFICULTY [None]
  - SKIN DISCOLOURATION [None]
  - SKIN WARM [None]
  - PAIN IN EXTREMITY [None]
  - TOE WALKING [None]
